FAERS Safety Report 5798719-3 (Version None)
Quarter: 2008Q2

REPORT INFORMATION
  Report Type: 
  Country: None (occurrence: None)
  Receive Date: 20080630
  Receipt Date: 20080617
  Transmission Date: 20081010
  Serious: Yes (Hospitalization)
  Sender: FDA-Public Use
  Company Number: 087-C5013-08060750

PATIENT
  Age: 59 Year
  Sex: Male

DRUGS (16)
  1. CC-5013 (LENALIDOMIDE) (CAPSULES) [Suspect]
     Indication: MULTIPLE MYELOMA
     Dosage: 25 MG, QD 21/28 DAYS, ORAL
     Route: 048
     Dates: start: 20080417, end: 20080612
  2. DEXAMETHASONE TAB [Suspect]
     Indication: MULTIPLE MYELOMA
     Dosage: 40 MG, DAY 1-4, 9-12, 17-20/ 28 DAYS, ORAL
     Route: 048
     Dates: start: 20080417, end: 20080612
  3. GLIMEPIRIDE (GLIMEPIRIDE) (TABLETS) [Concomitant]
  4. LANSOPRAZOLE [Concomitant]
  5. MAGNESIUM OXIDE (MAGNESIUM OXIDE) [Concomitant]
  6. MORPHINE [Concomitant]
  7. MECOBALAMIN (MECOBALAMIN) (TABLETS) [Concomitant]
  8. FENTANYL [Concomitant]
  9. KETOPROFEN [Concomitant]
  10. AN EXTRACT FROM INFLAMMATORY RABBIT SKIN INOCULATED BY VACCINA VIRUS ( [Concomitant]
  11. PASTARON (UREA) (LOTION (NOT FOR OPHTHALMIC USE)) [Concomitant]
  12. BACTRIM [Concomitant]
  13. ACYCLOVIR (ACICLOVIR) (TABLETS) [Concomitant]
  14. VITAMIN B6 (PYRIDOXINE HYDROCHLORIDE) (TABLETS) [Concomitant]
  15. FLUCONAZOLE [Concomitant]
  16. ASPIRIN [Concomitant]

REACTIONS (6)
  - ALANINE AMINOTRANSFERASE INCREASED [None]
  - ASPARTATE AMINOTRANSFERASE INCREASED [None]
  - BLOOD ALKALINE PHOSPHATASE INCREASED [None]
  - BLOOD BILIRUBIN INCREASED [None]
  - GAMMA-GLUTAMYLTRANSFERASE INCREASED [None]
  - HEPATIC FUNCTION ABNORMAL [None]
